FAERS Safety Report 20052578 (Version 3)
Quarter: 2022Q1

REPORT INFORMATION
  Report Type: Report from Study
  Country: US (occurrence: US)
  Receive Date: 20211110
  Receipt Date: 20220214
  Transmission Date: 20220423
  Serious: Yes (Other)
  Sender: FDA-Public Use
  Company Number: US-BIOVITRUM-2021US1325

PATIENT
  Age: 55 Year
  Sex: Female

DRUGS (2)
  1. KINERET [Suspect]
     Active Substance: ANAKINRA
     Indication: Rheumatoid arthritis
     Route: 058
     Dates: start: 20190425
  2. KINERET [Suspect]
     Active Substance: ANAKINRA
     Indication: Autoinflammatory disease
     Route: 058
     Dates: start: 201904

REACTIONS (11)
  - Adrenal insufficiency [Recovering/Resolving]
  - Impaired gastric emptying [Unknown]
  - Cellulitis [Recovering/Resolving]
  - Pituitary tumour benign [Unknown]
  - Dyspepsia [Unknown]
  - Acne [Unknown]
  - Vomiting [Unknown]
  - Wound [Recovering/Resolving]
  - Bone scan abnormal [Unknown]
  - Aneurysm [Unknown]
  - Off label use [Not Recovered/Not Resolved]

NARRATIVE: CASE EVENT DATE: 20190425
